FAERS Safety Report 5090851-5 (Version None)
Quarter: 2006Q3

REPORT INFORMATION
  Report Type: 
  Country: None (occurrence: None)
  Receive Date: 20060823
  Receipt Date: 20060810
  Transmission Date: 20061208
  Serious: Yes (Life-Threatening, Hospitalization, Other)
  Sender: FDA-Public Use
  Company Number: 2006096794

PATIENT
  Age: 80 Year
  Sex: Male
  Weight: 46 kg

DRUGS (15)
  1. SULPERAZON [Suspect]
     Indication: INFECTION
     Dosage: 2 GRAM (1 GRAM, 2 IN 1 D), INTRAVENOUS
     Route: 042
     Dates: start: 20060714, end: 20060715
  2. MEROPEN                   (MEROPENEM) [Suspect]
     Indication: DRUG USE FOR UNKNOWN INDICATION
     Dosage: 1 GRAM (0.5 GRAM, 2 IN 1 D), INTRAVENOUS
     Route: 042
     Dates: start: 20060716, end: 20060717
  3. VANCOMYCIN [Concomitant]
  4. BASEN                    (VOGLIBOSE) [Concomitant]
  5. BUFFERIN [Concomitant]
  6. URALYT (ARNICA EXTRACT, CONVALLARIA GLYCOSIDES, ECHINACEA ANGUSTIFOLIA [Concomitant]
  7. MUCOSTA (REBAMIPIDE) [Concomitant]
  8. FERROUS FUMARATE [Concomitant]
  9. ALFAROL (ALFACALCIDOL) [Concomitant]
  10. LASIX [Concomitant]
  11. LANSOPRAZOLE [Concomitant]
  12. MAGNESIUM OXIDE (MAGNESIUM OXIDE) [Concomitant]
  13. POLARAMINE [Concomitant]
  14. SENNOSIDES (SENNOSIDE A+B) [Concomitant]
  15. NATEGLINIDE [Concomitant]

REACTIONS (4)
  - GASTROINTESTINAL HAEMORRHAGE [None]
  - OCULOMUCOCUTANEOUS SYNDROME [None]
  - STEVENS-JOHNSON SYNDROME [None]
  - TOXIC EPIDERMAL NECROLYSIS [None]
